FAERS Safety Report 17362826 (Version 3)
Quarter: 2020Q1

REPORT INFORMATION
  Report Type: Spontaneous
  Country: US (occurrence: US)
  Receive Date: 20200203
  Receipt Date: 20200227
  Transmission Date: 20200409
  Serious: Yes (Death, Hospitalization, Other)
  Sender: FDA-Public Use
  Company Number: US-PFIZER INC-2018061289

PATIENT
  Age: 57 Year
  Sex: Female

DRUGS (2)
  1. LYRICA [Suspect]
     Active Substance: PREGABALIN
     Indication: BACK PAIN
     Dosage: 75 MG, 3X/DAY (1 CAPSULE 3 TIMES A DAY)
     Route: 048
     Dates: start: 20141126, end: 20200125
  2. LYRICA [Suspect]
     Active Substance: PREGABALIN
     Indication: PAIN

REACTIONS (13)
  - Respiratory arrest [Fatal]
  - Septic shock [Unknown]
  - Anaemia [Unknown]
  - Respiratory failure [Fatal]
  - Blood lactic acid increased [Unknown]
  - Acute kidney injury [Unknown]
  - Aspiration [Fatal]
  - Post procedural complication [Fatal]
  - Cardiac arrest [Unknown]
  - Leukocytosis [Unknown]
  - Dyspnoea [Unknown]
  - Pulmonary embolism [Unknown]
  - Fibrin D dimer increased [Unknown]

NARRATIVE: CASE EVENT DATE: 20200125
